FAERS Safety Report 12069907 (Version 1)
Quarter: 2016Q1

REPORT INFORMATION
  Report Type: Spontaneous
  Country: GB (occurrence: GB)
  Receive Date: 20160211
  Receipt Date: 20160211
  Transmission Date: 20160526
  Serious: Yes (Hospitalization)
  Sender: FDA-Public Use
  Company Number: GB-ALKEM-001454

PATIENT
  Age: 83 Year
  Sex: Female
  Weight: 81 kg

DRUGS (14)
  1. QUINIDINE [Concomitant]
     Active Substance: QUINIDINE
     Dosage: AT NIGHT.
     Dates: start: 20150912
  2. LOPERAMIDE [Concomitant]
     Active Substance: LOPERAMIDE
     Dosage: AS DIRECTED.
     Dates: start: 20150912
  3. IPRATROPIUM/IPRATROPIUM BROMIDE [Concomitant]
     Dosage: 1-2 SPRAYS THREE TIMES DAILY WHEN REQUIRED.
     Dates: start: 20150912
  4. LANSOPRAZOLE. [Concomitant]
     Active Substance: LANSOPRAZOLE
     Dosage: 1 D28
     Dates: start: 20150912, end: 20151110
  5. AMITRIPTYLINE [Concomitant]
     Active Substance: AMITRIPTYLINE
     Dosage: AT NIGHT.
     Dates: start: 20150912, end: 20151110
  6. CHLORHEXIDINE [Concomitant]
     Active Substance: CHLORHEXIDINE
     Dates: start: 20160120
  7. MENTHA X PIPERITA [Concomitant]
     Dates: start: 20150912
  8. CHOLINE SALICYLATE [Concomitant]
     Active Substance: CHOLINE SALICYLATE
     Dosage: USE AS DIRECTED.
     Dates: start: 20160120
  9. CODEINE [Concomitant]
     Active Substance: CODEINE
     Indication: PAIN
     Dates: start: 20150912
  10. OLANZAPINE. [Suspect]
     Active Substance: OLANZAPINE
     Indication: PRODUCT USED FOR UNKNOWN INDICATION
     Dates: start: 20151215
  11. NITROFURANTOIN/NITROFURANTOIN SODIUM [Concomitant]
     Indication: PROPHYLAXIS URINARY TRACT INFECTION
     Dosage: AT NIGHT.
     Dates: start: 20150912
  12. PLANTAGO OVATA [Concomitant]
     Active Substance: PLANTAGO OVATA LEAF
     Dosage: HALF SACHET EVERY DAY.
     Dates: start: 20150912
  13. CROMOGLICIC ACID [Concomitant]
     Active Substance: CROMOLYN
     Dosage: AS NECESSARY.
     Dates: start: 20130522
  14. PARACETAMOL [Concomitant]
     Active Substance: ACETAMINOPHEN
     Dosage: ONE OR TWO FOUR TIMES A DAY AS REQUIRED.
     Dates: start: 20150912

REACTIONS (4)
  - Hallucination, auditory [Unknown]
  - Tardive dyskinesia [Recovered/Resolved]
  - Confusional state [Unknown]
  - Persecutory delusion [Unknown]

NARRATIVE: CASE EVENT DATE: 20151215
